FAERS Safety Report 6904059-9 (Version None)
Quarter: 2010Q3

REPORT INFORMATION
  Report Type: 
  Country: None (occurrence: None)
  Receive Date: 20100804
  Receipt Date: 20090310
  Transmission Date: 20110219
  Serious: No
  Sender: FDA-Public Use
  Company Number: US-PFIZER INC-2009176368

PATIENT
  Sex: Female

DRUGS (1)
  1. LYRICA [Suspect]
     Indication: PAIN
     Dosage: UNK
     Dates: start: 20080920, end: 20080101

REACTIONS (6)
  - BALANCE DISORDER [None]
  - COGNITIVE DISORDER [None]
  - DIZZINESS [None]
  - FEELING ABNORMAL [None]
  - OEDEMA PERIPHERAL [None]
  - PAIN [None]
